FAERS Safety Report 8190275-8 (Version None)
Quarter: 2012Q1

REPORT INFORMATION
  Report Type: 
  Country: None (occurrence: None)
  Receive Date: 20120307
  Receipt Date: 20120222
  Transmission Date: 20120608
  Serious: Yes (Other)
  Sender: FDA-Public Use
  Company Number: IT-MYLANLABS-2012S1004396

PATIENT
  Age: 7 Decade
  Sex: Male

DRUGS (19)
  1. DEXAMETHASONE [Suspect]
     Indication: NON-HODGKIN'S LYMPHOMA STAGE IV
     Dosage: R-DHAP REGIMEN
     Route: 065
     Dates: start: 20080301, end: 20080701
  2. IBRITUMOMAB TIUXETAN [Suspect]
     Indication: NON-HODGKIN'S LYMPHOMA STAGE IV
     Route: 065
  3. VINCRISTINE [Suspect]
     Dosage: P-VABEC REGIMEN, 8 CYCLES
     Route: 065
     Dates: end: 20090801
  4. ETOPOSIDE [Suspect]
     Indication: NON-HODGKIN'S LYMPHOMA STAGE IV
     Dosage: IEV REGIMEN, 3 CYCLES
     Route: 065
     Dates: start: 20070201, end: 20070501
  5. CYCLOPHOSPHAMIDE [Suspect]
     Indication: NON-HODGKIN'S LYMPHOMA STAGE IV
     Dosage: R-CHOP REGIMEN, 6 CYCLES
     Route: 065
     Dates: start: 20050901, end: 20060101
  6. RITUXIMAB [Suspect]
     Indication: NON-HODGKIN'S LYMPHOMA STAGE IV
     Dosage: R-CHOP REGIMEN, 6 CYCLES
     Route: 065
     Dates: start: 20050901, end: 20060101
  7. BLEOMYCIN SULFATE [Suspect]
     Indication: NON-HODGKIN'S LYMPHOMA STAGE IV
     Dosage: P-VABEC REGIMEN, 8 CYCLES
     Route: 065
     Dates: end: 20090801
  8. DOXORUBICIN HCL [Suspect]
     Indication: NON-HODGKIN'S LYMPHOMA STAGE IV
     Dosage: R-CHOP REGIMEN, 6 CYCLES
     Route: 065
     Dates: start: 20050901, end: 20060101
  9. EPIRUBICIN [Suspect]
     Indication: NON-HODGKIN'S LYMPHOMA STAGE IV
     Dosage: IEV REGIMEN, 3 CYCLES
     Route: 065
     Dates: start: 20070201, end: 20070501
  10. ETOPOSIDE [Suspect]
     Dosage: P-VABEC REGIMEN, 8 CYCLES
     Route: 065
     Dates: end: 20090801
  11. PREDNISOLONE [Suspect]
     Indication: NON-HODGKIN'S LYMPHOMA STAGE IV
     Dosage: P-VABEC REGIMEN, 8 CYCLES
     Route: 065
     Dates: end: 20090801
  12. VINCRISTINE [Suspect]
     Indication: NON-HODGKIN'S LYMPHOMA STAGE IV
     Dosage: R-CHOP REGIMEN, 6 CYCLES
     Route: 065
     Dates: start: 20050901, end: 20060101
  13. IFOSFAMIDE [Suspect]
     Indication: NON-HODGKIN'S LYMPHOMA STAGE IV
     Dosage: IEV REGIMEN, 3 CYCLES
     Route: 065
     Dates: start: 20070201, end: 20070501
  14. CYTARABINE [Suspect]
     Indication: NON-HODGKIN'S LYMPHOMA STAGE IV
     Dosage: R-DHAP REGIMEN
     Route: 065
     Dates: start: 20080301, end: 20080701
  15. CYCLOPHOSPHAMIDE [Suspect]
     Dosage: P-VABEC REGIMEN, 8 CYCLES
     Route: 065
     Dates: end: 20090801
  16. DOXORUBICIN HCL [Suspect]
     Dosage: P-VABEC REGIMEN, 8 CYCLES
     Route: 065
     Dates: end: 20090801
  17. PREDNISONE TAB [Suspect]
     Indication: NON-HODGKIN'S LYMPHOMA STAGE IV
     Dosage: R-CHOP REGIMEN, 6 CYCLES
     Route: 065
     Dates: start: 20050901, end: 20060101
  18. RITUXIMAB [Suspect]
     Dosage: R-DHAP REGIMEN
     Route: 065
     Dates: start: 20080301, end: 20080701
  19. CISPLATIN [Suspect]
     Indication: NON-HODGKIN'S LYMPHOMA STAGE IV
     Dosage: R-DHAP REGIMEN
     Route: 065
     Dates: start: 20080301, end: 20080701

REACTIONS (4)
  - REFRACTORY CYTOPENIA WITH MULTILINEAGE DYSPLASIA [None]
  - THROMBOCYTOPENIA [None]
  - ANAEMIA [None]
  - CYTOGENETIC ABNORMALITY [None]
